FAERS Safety Report 17665550 (Version 1)
Quarter: 2020Q2

REPORT INFORMATION
  Report Type: Spontaneous
  Country: US (occurrence: US)
  Receive Date: 20200414
  Receipt Date: 20200414
  Transmission Date: 20200713
  Serious: Yes (Life-Threatening, Hospitalization, Disabling)
  Sender: FDA-Public Use
  Company Number: None

PATIENT
  Age: 80 Year
  Sex: Female
  Weight: 59 kg

DRUGS (10)
  1. CETIRIZINE 10 MG DAILY [Concomitant]
     Dates: start: 20200101
  2. RIVAROXABAN [Suspect]
     Active Substance: RIVAROXABAN
     Indication: ATRIAL FIBRILLATION
     Route: 048
     Dates: start: 20200101
  3. MULTIVITAMIN 1 TABLET DAILY [Concomitant]
     Dates: start: 20200101
  4. OMEPRAZOLE 20 MG DAILY [Concomitant]
     Dates: start: 20200101
  5. FAMOTIDINE 20 MG DAILY [Concomitant]
     Dates: start: 20200101
  6. LOSARTAN 50 MG DAILY [Concomitant]
     Dates: start: 20200101
  7. NO DRUG NAME [Concomitant]
     Dates: start: 20200101
  8. ATORVASTATIN 40 MG DAILY [Concomitant]
     Dates: start: 20200101
  9. QUETIAPINE 25 MG DAILY [Concomitant]
     Dates: start: 20200101
  10. METOPROLOL 25 MG BID [Concomitant]
     Dates: start: 20200101

REACTIONS (1)
  - Cerebral haemorrhage [None]

NARRATIVE: CASE EVENT DATE: 20200413
